FAERS Safety Report 16393508 (Version 2)
Quarter: 2019Q2

REPORT INFORMATION
  Report Type: Report from Study
  Country: US (occurrence: US)
  Receive Date: 20190605
  Receipt Date: 20190628
  Transmission Date: 20190711
  Serious: Yes (Other)
  Sender: FDA-Public Use
  Company Number: US-TAKEDA-2018TUS005178

PATIENT
  Sex: Male

DRUGS (1)
  1. PONATINIB [Suspect]
     Active Substance: PONATINIB
     Indication: CHRONIC LYMPHOCYTIC LEUKAEMIA
     Dosage: 45 MILLIGRAM, QD
     Route: 048
     Dates: start: 20180208

REACTIONS (7)
  - Cold sweat [Unknown]
  - Fatigue [Unknown]
  - Pyrexia [Recovered/Resolved]
  - Bone pain [Recovering/Resolving]
  - Pain [Unknown]
  - Chronic myeloid leukaemia recurrent [Unknown]
  - Constipation [Recovering/Resolving]
